FAERS Safety Report 7385505-6 (Version None)
Quarter: 2011Q1

REPORT INFORMATION
  Report Type: 
  Country: None (occurrence: None)
  Receive Date: 20110331
  Receipt Date: 20110328
  Transmission Date: 20110831
  Serious: Yes (Other)
  Sender: FDA-Public Use
  Company Number: US-ASTRAZENECA-2011SE17433

PATIENT
  Age: 16355 Day
  Sex: Male

DRUGS (13)
  1. LYRICA [Concomitant]
     Dosage: 100-150 MG
     Dates: start: 20060601
  2. CYCLOBENZAPRINE [Concomitant]
     Dosage: TAKE 1 TAB M
     Dates: start: 20041007
  3. DEPAKOTE ER [Concomitant]
     Dosage: TAKE 2-4 TAB AT
     Dates: start: 20040419
  4. METHOCARBAMOL [Concomitant]
     Dosage: TAKE 1 TAB EVER
     Dates: start: 20040927
  5. METRONIDAZOLE [Concomitant]
     Dosage: TAKE 1 TAB BY M
     Dates: start: 20041007
  6. ATENOLOL [Concomitant]
     Dosage: 50-100 MG
     Dates: start: 20041208
  7. GEODON [Concomitant]
     Dates: start: 20040419
  8. PROTONIX [Concomitant]
     Dosage: TAKE 1 TAB BY M
     Dates: start: 20040927
  9. BUTALBITAL/APAP/CAFFEIN [Concomitant]
     Dosage: TAKE 1 TAB AT B
     Dates: start: 20041007
  10. SEROQUEL [Suspect]
     Dosage: 25-300 MG, TAKE 1 OR 2 TAB
     Route: 048
     Dates: start: 20040521
  11. FLUOXETINE [Concomitant]
     Dosage: TAKE 1 CAP BY
     Dates: start: 20041208
  12. SALSALATE [Concomitant]
     Dosage: TAKE 1 TAB TWICE
     Dates: start: 20041007
  13. CLONAZEPAM [Concomitant]
     Dates: start: 20050629

REACTIONS (9)
  - TYPE 2 DIABETES MELLITUS [None]
  - HYPERLIPIDAEMIA [None]
  - ANXIETY [None]
  - ARTHRALGIA [None]
  - HYPERTENSION [None]
  - NEUROPATHY PERIPHERAL [None]
  - PAIN IN EXTREMITY [None]
  - TENOSYNOVITIS [None]
  - GASTROOESOPHAGEAL REFLUX DISEASE [None]
